FAERS Safety Report 8609709 (Version 2)
Quarter: 2014Q1

REPORT INFORMATION
  Report Type: Spontaneous
  Country: US (occurrence: None)
  Receive Date: 20120323
  Receipt Date: 20130305
  Transmission Date: 20141002
  Serious: Yes (Hospitalization)
  Sender: FDA-Public Use
  Company Number: 163-21880-11121569

PATIENT
  Age: 56 Year
  Sex: Male
  Weight: 93.8 kg

DRUGS (13)
  1. REVLIMID [Suspect]
     Indication: PLASMA CELL MYELOMA
     Dosage: 25 MG, 1 IN 1 D, PO
     Route: 048
     Dates: start: 20111110
  2. DEXAMETHASONE [Suspect]
     Indication: PLASMA CELL MYELOMA
     Dosage: 40 MGONDAYS1,15AND,22
     Dates: start: 20111017, end: 20111205
  3. MLN9708 [Suspect]
     Indication: PLASMA CELL MYELOMA
     Dosage: ON DAYS1,8AND15,PO
     Route: 048
     Dates: start: 20111017, end: 20111128
  4. FRAGMIN (HEPARIN-FRACTION, SODIUM SALT) [Concomitant]
  5. AMBIEN (ZOLPIDEM TARTRATE) [Concomitant]
  6. ATIVAN (LORAZEPAM) [Concomitant]
  7. VICODIN [Concomitant]
  8. ACYCLOVIR (ACICLOVIR) [Concomitant]
  9. NEXIUM (ESOMEPRAZOLE) [Concomitant]
  10. FENTANYL [Concomitant]
  11. GABAPENTIN [Concomitant]
  12. MULTIVITAMINS [Concomitant]
  13. LOVENOX (HEPARIN-FRACTION, SODIUM SALT) [Concomitant]

REACTIONS (2)
  - Pulmonary embolism [None]
  - Deep vein thrombosis [None]
